FAERS Safety Report 13896938 (Version 1)
Quarter: 2017Q3

REPORT INFORMATION
  Report Type: Spontaneous
  Country: US (occurrence: None)
  Receive Date: 20170822
  Receipt Date: 20170822
  Transmission Date: 20171127
  Serious: Yes (Hospitalization)
  Sender: FDA-Public Use
  Company Number: None

PATIENT
  Age: 51 Year
  Sex: Female

DRUGS (1)
  1. DIVALPROEX (VALPROATE) UNKNOWN, UNKNOWN [Suspect]
     Active Substance: DIVALPROEX SODIUM
     Dates: start: 20141113, end: 20141221

REACTIONS (6)
  - Nausea [None]
  - Abdominal discomfort [None]
  - Coagulopathy [None]
  - Pancreatitis [None]
  - Drug-induced liver injury [None]
  - Jaundice [None]

NARRATIVE: CASE EVENT DATE: 20141222
